FAERS Safety Report 5383467-4 (Version None)
Quarter: 2007Q3

REPORT INFORMATION
  Report Type: 
  Country: None (occurrence: None)
  Receive Date: 20070706
  Receipt Date: 20070626
  Transmission Date: 20080115
  Serious: Yes (Death)
  Sender: FDA-Public Use
  Company Number: GXKR2007I05457

PATIENT
  Age: 20 Year
  Sex: Male

DRUGS (6)
  1. CARBOPLATIN [Suspect]
     Dosage: 400 MG/M2, 2 COURSES
  2. CISPLATIN [Suspect]
     Dosage: 90 MG/M2
  3. ETOPOSIDE [Suspect]
     Dosage: 75 MG/M2, QD, 3 COURSES
  4. VINCRISTINE [Suspect]
     Dosage: 1.5 MG/M2, 3 COURSES
  5. CYCLOPHOSPHAMIDE [Suspect]
     Dosage: 1500 MG/M2, 2 COURSES
  6. RADIOTHERAPY(NO INGREDIENTS/SUBSTANCES) [Suspect]
     Dosage: SEE IMAGE

REACTIONS (6)
  - ASTHENIA [None]
  - CONVULSION [None]
  - DISEASE RECURRENCE [None]
  - DISORIENTATION [None]
  - GLIOBLASTOMA MULTIFORME [None]
  - MEMORY IMPAIRMENT [None]
